FAERS Safety Report 6087483-9 (Version None)
Quarter: 2009Q1

REPORT INFORMATION
  Report Type: 
  Country: None (occurrence: None)
  Receive Date: 20090219
  Receipt Date: 20081218
  Transmission Date: 20090719
  Serious: No
  Sender: FDA-Public Use
  Company Number: WAES 0812USA04083

PATIENT
  Age: 62 Year
  Sex: Female

DRUGS (15)
  1. JANUVIA [Suspect]
     Indication: TYPE 2 DIABETES MELLITUS
     Dosage: 100 MG/DAILY/PO
     Route: 048
     Dates: start: 20081216
  2. FORTAMET [Concomitant]
  3. CARVEDILOL [Concomitant]
  4. GLIMEPIRIDE [Concomitant]
  5. PRAVASTATIN SODIUM [Concomitant]
  6. . [Concomitant]
  7. . [Concomitant]
  8. . [Concomitant]
  9. . [Concomitant]
  10. . [Concomitant]
  11. . [Concomitant]
  12. . [Concomitant]
  13. . [Concomitant]
  14. . [Concomitant]
  15. . [Concomitant]

REACTIONS (4)
  - HEADACHE [None]
  - NAUSEA [None]
  - RHINORRHOEA [None]
  - VOMITING [None]
